FAERS Safety Report 21669867 (Version 1)
Quarter: 2022Q4

REPORT INFORMATION
  Report Type: Report from Study
  Country: US (occurrence: US)
  Receive Date: 20221201
  Receipt Date: 20221201
  Transmission Date: 20230112
  Serious: No
  Sender: FDA-Public Use
  Company Number: US-ABBVIE-4186930

PATIENT
  Sex: Female

DRUGS (22)
  1. SKYRIZI [Suspect]
     Active Substance: RISANKIZUMAB-RZAA
     Indication: Psoriasis
     Route: 058
  2. LOSARTAN POTASSIUM [Concomitant]
     Active Substance: LOSARTAN POTASSIUM
     Indication: Product used for unknown indication
  3. ROPINIROLE ER 2 MG TAB ER 24H [Concomitant]
     Indication: Product used for unknown indication
  4. BUPROPION HYDROCHLORIDE EXTENDED RELEASE [Concomitant]
     Active Substance: BUPROPION HYDROCHLORIDE
     Indication: Product used for unknown indication
  5. FLUOXETINE HYDROCHLORIDE [Concomitant]
     Active Substance: FLUOXETINE HYDROCHLORIDE
     Indication: Product used for unknown indication
  6. PROPRANOLOL HCL 80 MG TABLET [Concomitant]
     Indication: Product used for unknown indication
  7. COQ-10 100 MG CAPSULE [Concomitant]
     Indication: Product used for unknown indication
  8. MAGNESIUM 400 MG CAPSULE [Concomitant]
     Indication: Product used for unknown indication
  9. POTASSIUM CITRATE [Concomitant]
     Active Substance: POTASSIUM CITRATE
     Indication: Product used for unknown indication
  10. CELECOXIB [Concomitant]
     Active Substance: CELECOXIB
     Indication: Product used for unknown indication
  11. VITAMIN D3 10 MCG CAPSULE [Concomitant]
     Indication: Product used for unknown indication
  12. ARMODAFINIL 50 MG TABLET [Concomitant]
     Indication: Product used for unknown indication
  13. FUROSEMIDE [Concomitant]
     Active Substance: FUROSEMIDE
     Indication: Product used for unknown indication
  14. PROMETHAZINE HCL 25 MG TABLET [Concomitant]
     Indication: Product used for unknown indication
  15. ZOMIG 5 MG TABLET [Concomitant]
     Indication: Product used for unknown indication
  16. ZYRTEC [Concomitant]
     Active Substance: CETIRIZINE HYDROCHLORIDE
     Indication: Product used for unknown indication
  17. TRAMADOL HCL 50 MG TABLET [Concomitant]
     Indication: Product used for unknown indication
  18. GLUCOSAMINE-CHONDROITIN-MSM [Concomitant]
     Indication: Product used for unknown indication
  19. PREGABALIN 100 MG CAPSULE [Concomitant]
     Indication: Product used for unknown indication
  20. PFIZER COVID-19 VACCINE (EUA) [Concomitant]
     Indication: COVID-19 immunisation
     Route: 030
  21. CHLORTHALIDONE [Concomitant]
     Active Substance: CHLORTHALIDONE
     Indication: Product used for unknown indication
  22. SIMVASTAT IN 20 MG TABLET [Concomitant]
     Indication: Product used for unknown indication

REACTIONS (1)
  - Psoriasis [Not Recovered/Not Resolved]
